FAERS Safety Report 21549750 (Version 4)
Quarter: 2022Q4

REPORT INFORMATION
  Report Type: Spontaneous
  Country: PL (occurrence: PL)
  Receive Date: 20221103
  Receipt Date: 20221216
  Transmission Date: 20230112
  Serious: Yes (Hospitalization, Other)
  Sender: FDA-Public Use
  Company Number: PL-002147023-NVSC2022PL245382

PATIENT
  Age: 70 Year
  Sex: Female

DRUGS (3)
  1. BEOVU [Suspect]
     Active Substance: BROLUCIZUMAB-DBLL
     Indication: Neovascular age-related macular degeneration
     Dosage: 6 MG (ONE IN TO RIGHT EYE)
     Route: 047
     Dates: start: 20220504
  2. BEOVU [Suspect]
     Active Substance: BROLUCIZUMAB-DBLL
     Dosage: UNK
     Route: 047
     Dates: start: 20220629
  3. OFTAQUIX SINE [Concomitant]
     Indication: Product used for unknown indication
     Dosage: UNK, TID (3 DAYS BEFORE PROCEDURE, ON THE DAY OF PROCEDURE AND 3 DAYS AFTER PROCEDURE)
     Route: 065

REACTIONS (6)
  - Retinal vein occlusion [Not Recovered/Not Resolved]
  - Vitreous disorder [Not Recovered/Not Resolved]
  - Vitreous floaters [Not Recovered/Not Resolved]
  - Retinitis [Not Recovered/Not Resolved]
  - Visual acuity reduced [Recovering/Resolving]
  - Visual field defect [Unknown]
